FAERS Safety Report 10423515 (Version 1)
Quarter: 2014Q3

REPORT INFORMATION
  Report Type: Spontaneous
  Country: US (occurrence: None)
  Receive Date: 20140731
  Receipt Date: 20140731
  Transmission Date: 20150326
  Serious: Yes (Other)
  Sender: FDA-Public Use
  Company Number: JHP201400001

PATIENT

DRUGS (1)
  1. COLY-MYCIN M [Suspect]
     Active Substance: COLISTIMETHATE SODIUM

REACTIONS (1)
  - Renal failure [None]
